FAERS Safety Report 12331170 (Version 1)
Quarter: 2016Q2

REPORT INFORMATION
  Report Type: Spontaneous
  Country: US (occurrence: None)
  Receive Date: 20160503
  Receipt Date: 20160503
  Transmission Date: 20160815
  Serious: Yes (Other)
  Sender: FDA-Public Use
  Company Number: None

PATIENT
  Age: 77 Year
  Sex: Male
  Weight: 96.16 kg

DRUGS (14)
  1. OMEPRAZOLE GENERIC FOR PRILOSEC [Suspect]
     Active Substance: OMEPRAZOLE
     Indication: BARRETT^S OESOPHAGUS
     Route: 048
     Dates: start: 20080101
  2. COZAAR [Concomitant]
     Active Substance: LOSARTAN POTASSIUM
  3. BABY ASPRIN [Concomitant]
     Active Substance: ASPIRIN
  4. OMEPRAZOLE GENERIC FOR PRILOSEC [Suspect]
     Active Substance: OMEPRAZOLE
     Indication: GASTRIC ULCER
     Route: 048
     Dates: start: 20080101
  5. FLOWMAX [Concomitant]
  6. C PACK MASK + MACHINE FOR APNIA [Concomitant]
  7. ZINC [Concomitant]
     Active Substance: ZINC\ZINC CHLORIDE
  8. VITAMIN C [Concomitant]
     Active Substance: ASCORBIC ACID
  9. PRILOSEC [Concomitant]
     Active Substance: OMEPRAZOLE MAGNESIUM
  10. LOVASTATIN. [Concomitant]
     Active Substance: LOVASTATIN
  11. FINISTERIDE 1 OR 5MG MERCK [Concomitant]
     Active Substance: FINASTERIDE
  12. PAXIL [Concomitant]
     Active Substance: PAROXETINE HYDROCHLORIDE
  13. CALCIUM/D3 [Concomitant]
     Active Substance: CALCIUM\CHOLECALCIFEROL
  14. ONE A DAY VITAMINS [Concomitant]

REACTIONS (3)
  - Abnormal loss of weight [None]
  - Dizziness [None]
  - Blood pressure decreased [None]

NARRATIVE: CASE EVENT DATE: 20150301
